FAERS Safety Report 9087336 (Version 1)
Quarter: 2013Q1

REPORT INFORMATION
  Report Type: Report from Study
  Country: US (occurrence: US)
  Receive Date: 20130201
  Receipt Date: 20130201
  Transmission Date: 20140127
  Serious: No
  Sender: FDA-Public Use
  Company Number: US-ABBOTT-12P-163-1024499-00

PATIENT
  Sex: Male

DRUGS (2)
  1. HUMIRA [Suspect]
     Indication: RHEUMATOID ARTHRITIS
     Route: 058
     Dates: start: 20121107
  2. CYMBALTA [Suspect]
     Indication: NEUROPATHY PERIPHERAL

REACTIONS (3)
  - Oral discomfort [Unknown]
  - Dry mouth [Unknown]
  - Neuropathy peripheral [Unknown]
